FAERS Safety Report 5747558-8 (Version None)
Quarter: 2008Q2

REPORT INFORMATION
  Report Type: 
  Country: None (occurrence: None)
  Receive Date: 20080523
  Receipt Date: 20080514
  Transmission Date: 20081010
  Serious: Yes (Other)
  Sender: FDA-Public Use
  Company Number: FI-JNJFOC-20071203501

PATIENT
  Sex: Male
  Weight: 84 kg

DRUGS (3)
  1. REMICADE [Suspect]
     Indication: CROHN'S DISEASE
  2. PENTSA [Concomitant]
  3. MEDROL [Concomitant]

REACTIONS (4)
  - CHEST PAIN [None]
  - CONVULSION [None]
  - SARCOIDOSIS [None]
  - TUBERCULOSIS [None]
